FAERS Safety Report 8492838-9 (Version None)
Quarter: 2012Q3

REPORT INFORMATION
  Report Type: 
  Country: None (occurrence: None)
  Receive Date: 20120706
  Receipt Date: 20120625
  Transmission Date: 20120928
  Serious: Yes (Hospitalization)
  Sender: FDA-Public Use
  Company Number: DK-ELI_LILLY_AND_COMPANY-EWC041241754

PATIENT
  Sex: Female

DRUGS (13)
  1. ASPIRIN [Concomitant]
     Dosage: UNK, UNKNOWN
  2. TRAMADOL HCL [Concomitant]
     Dosage: UNK, UNKNOWN
  3. UNIKALK [Concomitant]
     Dosage: UNK, UNKNOWN
  4. FORTEO [Suspect]
     Dosage: 20 UG, DAILY (1/D)
     Route: 058
     Dates: start: 20041015, end: 20041126
  5. CENTYL MED KALIUMKLORID [Concomitant]
     Dosage: UNK, UNKNOWN
  6. PLENDIL [Concomitant]
     Dosage: 10 MG, UNKNOWN
     Route: 048
  7. POTASSIUM CHLORIDE [Concomitant]
     Dosage: UNK, UNKNOWN
     Route: 048
  8. ANAFRANIL [Concomitant]
     Dosage: UNK, UNKNOWN
     Route: 048
  9. ATORVASTATIN CALCIUM [Concomitant]
     Dosage: 20 MG, UNKNOWN
     Route: 048
  10. PINEX [Concomitant]
     Dosage: UNK, UNKNOWN
     Route: 048
  11. PERSANTINE [Concomitant]
     Dosage: 200 MG, UNKNOWN
     Route: 048
  12. ENALAPRIL MALEATE [Concomitant]
     Dosage: 20 MG, UNKNOWN
  13. FLUANXOL MITE [Concomitant]
     Dosage: UNK, UNKNOWN
     Route: 048

REACTIONS (6)
  - DYSPNOEA [None]
  - OEDEMA PERIPHERAL [None]
  - FATIGUE [None]
  - DEPRESSION [None]
  - HYPERCALCAEMIA [None]
  - COUGH [None]
